FAERS Safety Report 4546966-0 (Version None)
Quarter: 2005Q1

REPORT INFORMATION
  Report Type: 
  Country: None (occurrence: None)
  Receive Date: 20050106
  Receipt Date: 20030605
  Transmission Date: 20050727
  Serious: Yes (Hospitalization, Disabling)
  Sender: FDA-Public Use
  Company Number: US-MERCK-0306USA00814

PATIENT
  Age: 76 Year
  Sex: Male
  Weight: 98 kg

DRUGS (4)
  1. VIOXX [Suspect]
     Indication: ARTHRALGIA
     Route: 048
  2. VIOXX [Suspect]
     Route: 048
  3. COUMADIN [Concomitant]
     Route: 065
  4. COUMADIN [Concomitant]
     Route: 065

REACTIONS (36)
  - ACTINIC KERATOSIS [None]
  - ADVERSE EVENT [None]
  - AORTIC ATHEROSCLEROSIS [None]
  - AORTIC STENOSIS [None]
  - ATRIAL FLUTTER [None]
  - BENIGN PROSTATIC HYPERPLASIA [None]
  - BLADDER DIVERTICULUM [None]
  - BLADDER TRABECULATION [None]
  - BLOOD PRESSURE INCREASED [None]
  - CARDIAC FAILURE CONGESTIVE [None]
  - CARDIOMEGALY [None]
  - CORONARY ARTERY ATHEROSCLEROSIS [None]
  - CORONARY ARTERY OCCLUSION [None]
  - DILATATION ATRIAL [None]
  - DILATATION VENTRICULAR [None]
  - DYSPNOEA [None]
  - EJECTION FRACTION DECREASED [None]
  - ELECTROCARDIOGRAM ST-T CHANGE [None]
  - HEART RATE IRREGULAR [None]
  - HYPERCAPNIA [None]
  - HYPOCHLORAEMIA [None]
  - ISCHAEMIC CARDIOMYOPATHY [None]
  - METABOLIC ACIDOSIS [None]
  - MITRAL VALVE INCOMPETENCE [None]
  - NEOPLASM [None]
  - NOCTURIA [None]
  - OEDEMA PERIPHERAL [None]
  - PROSTATIC SPECIFIC ANTIGEN INCREASED [None]
  - PULMONARY ARTERIAL PRESSURE ABNORMAL [None]
  - PULMONARY OEDEMA [None]
  - RALES [None]
  - RIGHT VENTRICULAR SYSTOLIC PRESSURE INCREASED [None]
  - TACHYCARDIA [None]
  - TRICUSPID VALVE INCOMPETENCE [None]
  - URINARY RETENTION [None]
  - VENTRICULAR DYSFUNCTION [None]
